FAERS Safety Report 5953158-7 (Version None)
Quarter: 2008Q4

REPORT INFORMATION
  Report Type: 
  Country: None (occurrence: None)
  Receive Date: 20081114
  Receipt Date: 20081104
  Transmission Date: 20090506
  Serious: Yes (Other)
  Sender: FDA-Public Use
  Company Number: AT-BAYER-200827940GPV

PATIENT
  Age: 42 Year
  Sex: Female
  Weight: 87 kg

DRUGS (1)
  1. MIRENA [Suspect]
     Indication: CONTRACEPTION
     Route: 015
     Dates: start: 20080911

REACTIONS (3)
  - BLOOD PRESSURE INCREASED [None]
  - POST PROCEDURAL HAEMORRHAGE [None]
  - VERTIGO [None]
